FAERS Safety Report 6630225-6 (Version None)
Quarter: 2010Q1

REPORT INFORMATION
  Report Type: 
  Country: None (occurrence: None)
  Receive Date: 20100311
  Receipt Date: 20100305
  Transmission Date: 20100710
  Serious: Yes (Hospitalization)
  Sender: FDA-Public Use
  Company Number: A0848688A

PATIENT
  Sex: Male

DRUGS (4)
  1. ADVAIR DISKUS 100/50 [Suspect]
     Indication: CHRONIC OBSTRUCTIVE PULMONARY DISEASE
     Dosage: 1PUFF TWICE PER DAY
     Route: 055
     Dates: start: 20081101
  2. PROAIR HFA [Concomitant]
  3. ATROVENT [Concomitant]
  4. LASIX [Concomitant]

REACTIONS (3)
  - ADVERSE EVENT [None]
  - HOSPITALISATION [None]
  - PRODUCT QUALITY ISSUE [None]
